FAERS Safety Report 6220530-X (Version None)
Quarter: 2009Q2

REPORT INFORMATION
  Report Type: 
  Country: None (occurrence: None)
  Receive Date: 20090610
  Receipt Date: 20090602
  Transmission Date: 20091009
  Serious: Yes (Other)
  Sender: FDA-Public Use
  Company Number: DE-ASTRAZENECA-2009PK01411

PATIENT
  Age: 47 Year
  Sex: Female

DRUGS (1)
  1. NEXIUM [Suspect]
     Indication: GASTRITIS
     Route: 048
     Dates: start: 20090301

REACTIONS (1)
  - SKIN ULCER [None]
